FAERS Safety Report 16558239 (Version 1)
Quarter: 2019Q3

REPORT INFORMATION
  Report Type: Spontaneous
  Country: DE (occurrence: DE)
  Receive Date: 20190711
  Receipt Date: 20190711
  Transmission Date: 20191004
  Serious: Yes (Hospitalization)
  Sender: FDA-Public Use
  Company Number: DE-ACCORD-138143

PATIENT
  Age: 74 Year
  Sex: Female

DRUGS (6)
  1. MORPHINE [Concomitant]
     Active Substance: MORPHINE
     Dosage: NK MG, NK
  2. CORTISONE [Concomitant]
     Active Substance: CORTISONE
     Dosage: NK MG, SINCE 14 D
  3. BUDESONIDE/FORMOTEROL [Concomitant]
     Dosage: NK MCG, 1-0-1-0
     Route: 055
  4. LEVOTHYROXINE. [Concomitant]
     Active Substance: LEVOTHYROXINE
     Dosage: 50 MCG, 1-0-0-0
  5. TIOTROPIUM [Concomitant]
     Active Substance: TIOTROPIUM
     Dosage: NK MCG, 2-0-0-0
     Route: 055
  6. FLUOROURACIL. [Suspect]
     Active Substance: FLUOROURACIL
     Indication: PRODUCT USED FOR UNKNOWN INDICATION
     Dosage: NK MG, LAST 4 WEEKS AGO

REACTIONS (1)
  - Dyspnoea [Unknown]

NARRATIVE: CASE EVENT DATE: 20171014
